FAERS Safety Report 12525494 (Version 1)
Quarter: 2016Q3

REPORT INFORMATION
  Report Type: Spontaneous
  Country: IT (occurrence: IT)
  Receive Date: 20160704
  Receipt Date: 20160704
  Transmission Date: 20161109
  Serious: Yes (Other)
  Sender: FDA-Public Use
  Company Number: IT-BRISTOL-MYERS SQUIBB COMPANY-BMS-2016-053093

PATIENT
  Age: 53 Year
  Sex: Male
  Weight: 60 kg

DRUGS (4)
  1. SOVALDI [Suspect]
     Active Substance: SOFOSBUVIR
     Indication: HEPATITIS C VIRUS TEST
     Dosage: 400 MG, QD
     Route: 048
     Dates: start: 20160329, end: 20160623
  2. ISENTRESS [Concomitant]
     Active Substance: RALTEGRAVIR POTASSIUM
     Indication: HIV INFECTION
     Dosage: 400 MG, UNK
     Route: 048
  3. TRUVADA [Concomitant]
     Active Substance: EMTRICITABINE\TENOFOVIR DISOPROXIL FUMARATE
     Indication: HIV INFECTION
     Dosage: 200 MG, UNK
     Route: 048
  4. DAKLINZA [Suspect]
     Active Substance: DACLATASVIR
     Indication: HEPATITIS C VIRUS TEST
     Dosage: 60 MG, UNK
     Route: 048
     Dates: start: 20160329, end: 20160623

REACTIONS (1)
  - Dyspnoea exertional [Recovering/Resolving]

NARRATIVE: CASE EVENT DATE: 20160623
